FAERS Safety Report 18958013 (Version 1)
Quarter: 2021Q1

REPORT INFORMATION
  Report Type: Spontaneous
  Country: US (occurrence: US)
  Receive Date: 20210301
  Receipt Date: 20210301
  Transmission Date: 20210420
  Serious: Yes (Hospitalization)
  Sender: FDA-Public Use
  Company Number: None

PATIENT
  Sex: Male

DRUGS (20)
  1. METHOTREXATE. [Concomitant]
     Active Substance: METHOTREXATE
  2. METRONIDAZOL [Concomitant]
     Active Substance: METRONIDAZOLE
  3. ATENOLOL. [Concomitant]
     Active Substance: ATENOLOL
  4. BUPROPN HCL XL [Concomitant]
  5. AMOX/K CLAV [Concomitant]
     Active Substance: AMOXICILLIN\CLAVULANATE POTASSIUM
  6. VENLAFAXINE ER [Concomitant]
     Active Substance: VENLAFAXINE HYDROCHLORIDE
  7. BROM/PSE/DM [Concomitant]
  8. LEVOFLOXACIN. [Concomitant]
     Active Substance: LEVOFLOXACIN
  9. PHENAZOPYRID [Concomitant]
  10. VENLAFAXINE [Concomitant]
     Active Substance: VENLAFAXINE HYDROCHLORIDE
  11. CETIRIZINE [Concomitant]
     Active Substance: CETIRIZINE HYDROCHLORIDE
  12. LEFLUNOMIDE. [Concomitant]
     Active Substance: LEFLUNOMIDE
  13. MELOXICAM. [Concomitant]
     Active Substance: MELOXICAM
  14. METHYLPRED [Concomitant]
     Active Substance: METHYLPREDNISOLONE
  15. MONTELUKAST [Concomitant]
     Active Substance: MONTELUKAST SODIUM
  16. FOLIC ACID. [Concomitant]
     Active Substance: FOLIC ACID
  17. NITROFURANTIN [Concomitant]
     Active Substance: NITROFURANTOIN
  18. ENBREL [Suspect]
     Active Substance: ETANERCEPT
     Indication: RHEUMATOID ARTHRITIS
     Dosage: 1 SYR QWK SQ
     Route: 058
     Dates: start: 20180425
  19. ALBUTEROL AER [Concomitant]
     Active Substance: ALBUTEROL
  20. HYDROXYCHLOR [Concomitant]
     Active Substance: HYDROXYCHLOROQUINE

REACTIONS (3)
  - Infection [None]
  - Kidney infection [None]
  - Bronchitis [None]
